FAERS Safety Report 9801807 (Version 1)
Quarter: 2014Q1

REPORT INFORMATION
  Report Type: Spontaneous
  Country: US (occurrence: US)
  Receive Date: 20140107
  Receipt Date: 20140107
  Transmission Date: 20141002
  Serious: No
  Sender: FDA-Public Use
  Company Number: US-TEVA-454566USA

PATIENT
  Age: 42 Year
  Sex: Female
  Weight: 48.12 kg

DRUGS (4)
  1. PARAGARD 380A [Suspect]
     Indication: CONTRACEPTION
     Route: 015
     Dates: start: 20131220, end: 20131229
  2. VOLTREX [Concomitant]
  3. TESTOSTERONE [Concomitant]
  4. ESTRADIOL [Concomitant]

REACTIONS (1)
  - Device expulsion [Recovered/Resolved]
